FAERS Safety Report 18287838 (Version 1)
Quarter: 2020Q3

REPORT INFORMATION
  Report Type: Spontaneous
  Country: US (occurrence: US)
  Receive Date: 20200918
  Receipt Date: 20200918
  Transmission Date: 20201103
  Serious: Yes (Disabling, Other)
  Sender: FDA-Public Use
  Company Number: None

PATIENT
  Age: 51 Year
  Sex: Female
  Weight: 50.4 kg

DRUGS (7)
  1. OXYCODONE [Concomitant]
     Active Substance: OXYCODONE
  2. ATIVAN [Concomitant]
     Active Substance: LORAZEPAM
  3. LEVOTHYROXINE. [Concomitant]
     Active Substance: LEVOTHYROXINE
  4. LISINOPRIL. [Concomitant]
     Active Substance: LISINOPRIL
  5. OMEPRAZOLE. [Concomitant]
     Active Substance: OMEPRAZOLE
  6. METFORMIN [Concomitant]
     Active Substance: METFORMIN HYDROCHLORIDE
  7. LYNPARZA [Suspect]
     Active Substance: OLAPARIB
     Indication: DUCTAL ADENOCARCINOMA OF PANCREAS
     Dosage: ?          QUANTITY:2 CAPSULE(S);?
     Route: 048
     Dates: start: 20200715, end: 20200823

REACTIONS (4)
  - Gastrointestinal haemorrhage [None]
  - Product use in unapproved indication [None]
  - Malignant neoplasm progression [None]
  - Neuropathy peripheral [None]

NARRATIVE: CASE EVENT DATE: 20200715
